FAERS Safety Report 19114517 (Version 1)
Quarter: 2021Q2

REPORT INFORMATION
  Report Type: Spontaneous
  Country: US (occurrence: US)
  Receive Date: 20210408
  Receipt Date: 20210408
  Transmission Date: 20210717
  Serious: No
  Sender: FDA-Public Use
  Company Number: US-PERRIGO-20US009997

PATIENT
  Sex: Female

DRUGS (2)
  1. ACETAMINOPHEN. [Suspect]
     Active Substance: ACETAMINOPHEN
     Dosage: 650 MG, EVERY 8 HOURS
     Route: 048
     Dates: start: 20200703
  2. ACETAMINOPHEN. [Suspect]
     Active Substance: ACETAMINOPHEN
     Indication: MYALGIA
     Dosage: 1300 MG, EVERY 8 HOURS
     Route: 048
     Dates: start: 202006, end: 20200702

REACTIONS (3)
  - Drug ineffective [Unknown]
  - Underdose [Not Recovered/Not Resolved]
  - Incorrect product administration duration [Not Recovered/Not Resolved]

NARRATIVE: CASE EVENT DATE: 202006
